FAERS Safety Report 16197742 (Version 1)
Quarter: 2019Q2

REPORT INFORMATION
  Report Type: Spontaneous
  Country: US (occurrence: US)
  Receive Date: 20190311
  Receipt Date: 20190311
  Transmission Date: 20190711
  Serious: No
  Sender: FDA-Public Use
  Company Number: None

PATIENT
  Age: 64 Year
  Sex: Female
  Weight: 68.04 kg

DRUGS (7)
  1. FORTEO [Suspect]
     Active Substance: TERIPARATIDE
     Indication: GASTROOESOPHAGEAL REFLUX DISEASE
     Route: 058
     Dates: start: 201805
  2. ISONIAZID. [Suspect]
     Active Substance: ISONIAZID
     Indication: GASTROOESOPHAGEAL REFLUX DISEASE
  3. FORTEO [Suspect]
     Active Substance: TERIPARATIDE
     Indication: SENILE OSTEOPOROSIS
     Route: 058
     Dates: start: 201805
  4. FORTEO [Suspect]
     Active Substance: TERIPARATIDE
     Indication: FUNGAL INFECTION
     Route: 058
     Dates: start: 201805
  5. ISONIAZID. [Suspect]
     Active Substance: ISONIAZID
     Indication: FIBROUS DYSPLASIA OF BONE
  6. ISONIAZID. [Suspect]
     Active Substance: ISONIAZID
     Indication: SENILE OSTEOPOROSIS
  7. ISONIAZID. [Suspect]
     Active Substance: ISONIAZID
     Indication: RHEUMATOID ARTHRITIS

REACTIONS (6)
  - Hepatic enzyme increased [None]
  - Weight decreased [None]
  - Pruritus [None]
  - Abdominal pain upper [None]
  - Anaemia [None]
  - Rash [None]
